FAERS Safety Report 6077171-7 (Version None)
Quarter: 2009Q1

REPORT INFORMATION
  Report Type: 
  Country: None (occurrence: None)
  Receive Date: 20090213
  Receipt Date: 20090205
  Transmission Date: 20090719
  Serious: Yes (Other)
  Sender: FDA-Public Use
  Company Number: B0556050A

PATIENT
  Age: 45 Year
  Sex: Male

DRUGS (1)
  1. NIQUITIN CQ CLEAR 14MG [Suspect]
     Dosage: 14MG PER DAY
     Route: 062
     Dates: start: 20090112, end: 20090117

REACTIONS (6)
  - AGGRESSION [None]
  - CONVULSION [None]
  - DYSKINESIA [None]
  - MUSCLE TWITCHING [None]
  - SPEECH DISORDER [None]
  - TREMOR [None]
